FAERS Safety Report 19002264 (Version 1)
Quarter: 2021Q1

REPORT INFORMATION
  Report Type: Spontaneous
  Country: US (occurrence: US)
  Receive Date: 20210312
  Receipt Date: 20210312
  Transmission Date: 20210420
  Serious: Yes (Hospitalization)
  Sender: FDA-Public Use
  Company Number: None

PATIENT
  Age: 59 Year

DRUGS (2)
  1. BEVACIZUMAB. [Suspect]
     Active Substance: BEVACIZUMAB
     Dates: end: 20210216
  2. DOXIL [Suspect]
     Active Substance: DOXORUBICIN HYDROCHLORIDE
     Dates: end: 20210216

REACTIONS (4)
  - Small intestinal obstruction [None]
  - Peritonitis [None]
  - Ascites [None]
  - Metastases to peritoneum [None]

NARRATIVE: CASE EVENT DATE: 20210228
